FAERS Safety Report 8347737-X (Version None)
Quarter: 2012Q2

REPORT INFORMATION
  Report Type: 
  Country: None (occurrence: None)
  Receive Date: 20120509
  Receipt Date: 20120430
  Transmission Date: 20120825
  Serious: Yes (Disabling)
  Sender: FDA-Public Use
  Company Number: US-ALLERGAN-1206159US

PATIENT
  Age: 55 Year
  Sex: Female

DRUGS (1)
  1. BOTOX COSMETIC [Suspect]
     Indication: SKIN WRINKLING
     Dosage: UNK
     Route: 030
     Dates: start: 20070101, end: 20070101

REACTIONS (14)
  - DYSPNOEA [None]
  - VISION BLURRED [None]
  - SPINAL PAIN [None]
  - PAIN [None]
  - ACTIVITIES OF DAILY LIVING IMPAIRED [None]
  - FACIAL SPASM [None]
  - TREMOR [None]
  - HEADACHE [None]
  - MUSCLE SPASMS [None]
  - MALAISE [None]
  - PERIORBITAL HAEMATOMA [None]
  - BEDRIDDEN [None]
  - VISUAL ACUITY REDUCED [None]
  - NECK PAIN [None]
